FAERS Safety Report 13448512 (Version 4)
Quarter: 2018Q3

REPORT INFORMATION
  Report Type: Spontaneous
  Country: JP (occurrence: JP)
  Receive Date: 20170417
  Receipt Date: 20180727
  Transmission Date: 20181010
  Serious: Yes (Death, Other)
  Sender: FDA-Public Use
  Company Number: JP-BAYER-2017-068284

PATIENT
  Age: 80 Year
  Sex: Male
  Weight: 38 kg

DRUGS (2)
  1. XOFIGO [Suspect]
     Active Substance: RADIUM RA-223 DICHLORIDE
     Indication: HORMONE-REFRACTORY PROSTATE CANCER
     Dosage: 1DF, ONCE, 55 KBG/KG?
     Route: 042
     Dates: start: 20170317, end: 20170317
  2. XOFIGO [Suspect]
     Active Substance: RADIUM RA-223 DICHLORIDE
     Indication: METASTASES TO BONE
     Dosage: 55 KBQ, ONCE
     Route: 042
     Dates: start: 20170217, end: 20170217

REACTIONS (4)
  - Postrenal failure [None]
  - Bone marrow failure [Recovered/Resolved]
  - Hormone-refractory prostate cancer [Fatal]
  - Blood alkaline phosphatase decreased [None]

NARRATIVE: CASE EVENT DATE: 20170502
